FAERS Safety Report 19368468 (Version 2)
Quarter: 2022Q2

REPORT INFORMATION
  Report Type: Spontaneous
  Country: US (occurrence: None)
  Receive Date: 20210602
  Receipt Date: 20220505
  Transmission Date: 20220721
  Serious: No
  Sender: FDA-Public Use
  Company Number: US-ROCHE-2664169

PATIENT
  Sex: Female
  Weight: 138 kg

DRUGS (1)
  1. OCREVUS [Suspect]
     Active Substance: OCRELIZUMAB
     Indication: Multiple sclerosis
     Dosage: ON 11/JUN/2020, SHE RECEIVED THE LAST DOSE OF OCRELIZUMAB.
     Route: 065
     Dates: start: 20181219, end: 20200611

REACTIONS (1)
  - Maternal exposure before pregnancy [Unknown]
